FAERS Safety Report 7920148-4 (Version None)
Quarter: 2011Q4

REPORT INFORMATION
  Report Type: 
  Country: None (occurrence: None)
  Receive Date: 20111117
  Receipt Date: 20111108
  Transmission Date: 20120403
  Serious: Yes (Hospitalization, Other)
  Sender: FDA-Public Use
  Company Number: CA-JNJFOC-20111104576

PATIENT
  Sex: Male
  Weight: 85 kg

DRUGS (9)
  1. REMICADE [Suspect]
     Indication: ANKYLOSING SPONDYLITIS
     Dosage: TO THE PRESENT
     Route: 042
     Dates: start: 20061201
  2. VIAGRA [Concomitant]
  3. ADALAT CC [Concomitant]
  4. OMEPRAZOLE [Concomitant]
  5. ALTACE [Concomitant]
  6. ALENDRONATE SODIUM [Concomitant]
  7. IMURAN [Concomitant]
  8. SYNTHROID [Concomitant]
  9. PREDNISONE TAB [Concomitant]

REACTIONS (2)
  - ARTHROPOD STING [None]
  - TENDON OPERATION [None]
